FAERS Safety Report 16481962 (Version 1)
Quarter: 2019Q2

REPORT INFORMATION
  Report Type: Report from Study
  Country: GR (occurrence: GR)
  Receive Date: 20190627
  Receipt Date: 20190627
  Transmission Date: 20190711
  Serious: Yes (Hospitalization, Other)
  Sender: FDA-Public Use
  Company Number: GR-SA-2019SA162479

PATIENT
  Age: 26 Year
  Sex: Male

DRUGS (3)
  1. INSULIN GLULISINE [Suspect]
     Active Substance: INSULIN GLULISINE
     Indication: DIABETES MELLITUS
     Dosage: 6U IN THE MORNING-10U IN THE NOON-6U IN THE EVENING
     Route: 058
  2. INSULIN GLULISINE [Suspect]
     Active Substance: INSULIN GLULISINE
     Dosage: DEPENDING ON THE GLUCOSE LEVELS, TID
     Route: 058
  3. INSULIN GLARGINE [Suspect]
     Active Substance: INSULIN GLARGINE
     Indication: DIABETES MELLITUS
     Dosage: 28 U, QD
     Route: 058

REACTIONS (12)
  - Refusal of treatment by patient [Unknown]
  - Product administration error [Unknown]
  - Lack of injection site rotation [Unknown]
  - Condition aggravated [Unknown]
  - Multiple use of single-use product [Unknown]
  - Cataract [Unknown]
  - Eye disorder [Unknown]
  - Blood glucose increased [Unknown]
  - Blood glucose abnormal [Unknown]
  - Mental disorder [Unknown]
  - Wrong technique in product usage process [Unknown]
  - Glaucoma [Unknown]
